FAERS Safety Report 13242581 (Version 1)
Quarter: 2017Q1

REPORT INFORMATION
  Report Type: Spontaneous
  Country: US (occurrence: US)
  Receive Date: 20170216
  Receipt Date: 20170216
  Transmission Date: 20170428
  Serious: Yes (Other)
  Sender: FDA-Public Use
  Company Number: US-SA-2017SA023142

PATIENT
  Sex: Female

DRUGS (1)
  1. LEUKINE [Suspect]
     Active Substance: SARGRAMOSTIM
     Indication: METASTATIC MALIGNANT MELANOMA
     Route: 065
     Dates: start: 2005

REACTIONS (3)
  - Off label use [Unknown]
  - Pneumonia [Unknown]
  - Organising pneumonia [Unknown]

NARRATIVE: CASE EVENT DATE: 2016
